FAERS Safety Report 4829167-8 (Version None)
Quarter: 2005Q4

REPORT INFORMATION
  Report Type: 
  Country: None (occurrence: None)
  Receive Date: 20051027
  Receipt Date: 20050401
  Transmission Date: 20060501
  Serious: Yes (Other)
  Sender: FDA-Public Use
  Company Number: USA-2005-0019608

PATIENT
  Age: 44 Year
  Sex: Female

DRUGS (1)
  1. SPECTRACEF [Suspect]
     Indication: BRONCHITIS
     Dosage: 400 MG, BID, UNKNOWN
     Route: 065

REACTIONS (2)
  - CLOSTRIDIUM COLITIS [None]
  - DIARRHOEA [None]
